FAERS Safety Report 12934756 (Version 1)
Quarter: 2016Q4

REPORT INFORMATION
  Report Type: Spontaneous
  Country: US (occurrence: US)
  Receive Date: 20161112
  Receipt Date: 20161112
  Transmission Date: 20170207
  Serious: No
  Sender: FDA-Public Use
  Company Number: US-ZYDUS-010614

PATIENT
  Sex: Male

DRUGS (8)
  1. AMIODARONE [Suspect]
     Active Substance: AMIODARONE
     Indication: ATRIAL FIBRILLATION
     Route: 048
     Dates: start: 20151208, end: 20160310
  2. TIMOLOL/TIMOLOL MALEATE/TIMOLOL MALEATE/R-ENANTIOMER/TIMOLOL MALEATE/S-ENANTIOMER [Concomitant]
     Indication: GLAUCOMA
  3. TAFLUPROST [Concomitant]
     Active Substance: TAFLUPROST
     Indication: GLAUCOMA
  4. ATORVASTATIN/ATORVASTATIN CALCIUM [Concomitant]
     Indication: BLOOD CHOLESTEROL INCREASED
  5. DABIGATRAN [Concomitant]
     Active Substance: DABIGATRAN
     Indication: ATRIAL FIBRILLATION
  6. ALLOPURINOL/ALLOPURINOL SODIUM [Concomitant]
     Indication: GOUT
  7. ENALAPRIL/ENALAPRIL MALEATE [Concomitant]
     Indication: HYPERTENSION
  8. HYDROCHLOROTHIAZIDE. [Concomitant]
     Active Substance: HYDROCHLOROTHIAZIDE
     Indication: HYPERTENSION

REACTIONS (1)
  - Muscular weakness [Recovered/Resolved]
